FAERS Safety Report 6994301-0 (Version None)
Quarter: 2010Q3

REPORT INFORMATION
  Report Type: 
  Country: None (occurrence: None)
  Receive Date: 20100917
  Receipt Date: 20100907
  Transmission Date: 20110219
  Serious: Yes (Hospitalization)
  Sender: FDA-Public Use
  Company Number: BE-CELGENEUS-013-C5013-10062655

PATIENT
  Sex: Male
  Weight: 78.8 kg

DRUGS (37)
  1. THALIDOMIDE [Suspect]
     Indication: MULTIPLE MYELOMA
     Route: 048
     Dates: start: 20100526, end: 20100625
  2. THALIDOMIDE [Suspect]
     Route: 048
     Dates: start: 20100520
  3. MELPHALAN HYDROCHLORIDE [Suspect]
     Indication: MULTIPLE MYELOMA
     Route: 048
     Dates: start: 20100520, end: 20100625
  4. PREDNISONE [Suspect]
     Indication: MULTIPLE MYELOMA
     Route: 048
     Dates: start: 20100520, end: 20100523
  5. PREDNISONE [Suspect]
     Route: 048
     Dates: end: 20100625
  6. NULYTELY [Concomitant]
     Indication: CONSTIPATION
     Route: 048
     Dates: start: 20100528, end: 20100531
  7. NULYTELY [Concomitant]
     Route: 048
     Dates: start: 20100601
  8. NULYTELY [Concomitant]
     Route: 048
     Dates: end: 20100504
  9. NULYTELY [Concomitant]
     Route: 048
     Dates: end: 20100527
  10. OMEPRAZOLE [Concomitant]
     Indication: PROPHYLAXIS
     Route: 048
  11. CACIT VITAMIN D3 [Concomitant]
     Indication: VITAMIN SUPPLEMENTATION
     Route: 048
     Dates: start: 20100503
  12. ENOXAPARIN SODIUM [Concomitant]
     Indication: THROMBOSIS PROPHYLAXIS
     Route: 058
     Dates: start: 20100415
  13. ASPIRIN [Concomitant]
     Indication: THROMBOSIS PROPHYLAXIS
     Route: 048
  14. VERAPAMIL HYDROCHLORIDE [Concomitant]
     Indication: HYPERTENSION
     Route: 048
  15. PREGABALIN [Concomitant]
     Route: 048
  16. AMITRIPTYLINE HCL [Concomitant]
     Indication: DEPRESSION
     Route: 048
  17. FENTANYL CITRATE [Concomitant]
     Route: 062
     Dates: start: 20100513, end: 20100524
  18. FENTANYL CITRATE [Concomitant]
     Indication: RIB FRACTURE
     Route: 062
     Dates: start: 20100525, end: 20100525
  19. FENTANYL CITRATE [Concomitant]
     Route: 062
     Dates: start: 20100528
  20. CETIRIZINE HYDROCHLORIDE [Concomitant]
     Indication: PROPHYLAXIS
     Route: 048
     Dates: start: 20100522
  21. NATRIUM PICOSULFAAT [Concomitant]
     Indication: CONSTIPATION
     Route: 048
     Dates: start: 20100522, end: 20100527
  22. NATRIUM PICOSULFAAT [Concomitant]
     Route: 048
     Dates: start: 20100528, end: 20100530
  23. NATRIUM PICOSULFAAT [Concomitant]
     Route: 048
     Dates: start: 20100527, end: 20100527
  24. MORPHINE SULFATE [Concomitant]
     Route: 048
     Dates: start: 20100522, end: 20100522
  25. MORPHINE SULFATE [Concomitant]
     Indication: RIB FRACTURE
     Route: 048
     Dates: start: 20100523, end: 20100523
  26. MORPHINE SULFATE [Concomitant]
     Route: 048
     Dates: start: 20100524, end: 20100524
  27. MORPHINE SULFATE [Concomitant]
     Route: 048
     Dates: start: 20100525, end: 20100525
  28. MORPHINE SULFATE [Concomitant]
     Route: 048
     Dates: start: 20100526, end: 20100526
  29. ACETAMINOPHEN [Concomitant]
     Indication: RIB FRACTURE
     Route: 048
     Dates: start: 20100522, end: 20100524
  30. ACETAMINOPHEN [Concomitant]
     Route: 048
     Dates: start: 20100525, end: 20100525
  31. ACETAMINOPHEN [Concomitant]
     Route: 048
     Dates: start: 20100527
  32. FERO-GRAD [Concomitant]
     Indication: IRON DEFICIENCY
     Route: 048
     Dates: start: 20100527
  33. FUROSEMIDE [Concomitant]
     Route: 051
     Dates: start: 20100528, end: 20100530
  34. DINATRIUM PAMIDRONAAT [Concomitant]
     Indication: OSTEOPOROSIS PROPHYLAXIS
     Route: 051
     Dates: start: 20100527, end: 20100527
  35. OXYCODON [Concomitant]
     Indication: RIB FRACTURE
     Route: 048
     Dates: start: 20100526, end: 20100527
  36. OXYCODON [Concomitant]
     Route: 048
     Dates: start: 20100528, end: 20100529
  37. OXYCODON [Concomitant]
     Route: 048
     Dates: start: 20100603

REACTIONS (3)
  - MALAISE [None]
  - PYREXIA [None]
  - SLEEP APNOEA SYNDROME [None]
